FAERS Safety Report 18367253 (Version 1)
Quarter: 2020Q4

REPORT INFORMATION
  Report Type: Spontaneous
  Country: FR (occurrence: FR)
  Receive Date: 20201009
  Receipt Date: 20201009
  Transmission Date: 20210114
  Serious: Yes (Hospitalization)
  Sender: FDA-Public Use
  Company Number: FR-MYLANLABS-2020M1085011

PATIENT
  Age: 47 Year
  Sex: Female

DRUGS (1)
  1. NALBUPHINE [Suspect]
     Active Substance: NALBUPHINE
     Indication: PAIN
     Dosage: 60 MILLIGRAM, QD
     Route: 042
     Dates: start: 20200807, end: 20200810

REACTIONS (1)
  - Hallucinations, mixed [Recovered/Resolved]

NARRATIVE: CASE EVENT DATE: 20200808
